FAERS Safety Report 20673393 (Version 1)
Quarter: 2022Q2

REPORT INFORMATION
  Report Type: Spontaneous
  Country: US (occurrence: None)
  Receive Date: 20220403
  Receipt Date: 20220403
  Transmission Date: 20220720
  Serious: No
  Sender: FDA-Public Use
  Company Number: None

PATIENT
  Age: 75 Year
  Sex: Male

DRUGS (1)
  1. ATORVASTATIN [Suspect]
     Active Substance: ATORVASTATIN
     Indication: Hyperlipidaemia
     Dosage: 80 MG AT BEDTIME PO
     Route: 048
     Dates: start: 20220201, end: 20220316

REACTIONS (5)
  - Myalgia [None]
  - Pyrexia [None]
  - Hepatic enzyme increased [None]
  - Chromaturia [None]
  - Liver injury [None]

NARRATIVE: CASE EVENT DATE: 20220316
